APPROVED DRUG PRODUCT: ROBAXIN
Active Ingredient: METHOCARBAMOL
Strength: 1GM/10ML (100MG/ML)
Dosage Form/Route: SOLUTION;IM-IV
Application: N011790 | Product #001 | TE Code: AP
Applicant: HIKMA PHARMACEUTICALS USA INC
Approved: Approved Prior to Jan 1, 1982 | RLD: Yes | RS: Yes | Type: RX